FAERS Safety Report 15454707 (Version 1)
Quarter: 2018Q3

REPORT INFORMATION
  Report Type: Spontaneous
  Country: US (occurrence: US)
  Receive Date: 20180927
  Receipt Date: 20180927
  Transmission Date: 20181010
  Serious: No
  Sender: FDA-Public Use
  Company Number: None

PATIENT
  Age: 47 Year
  Sex: Male

DRUGS (1)
  1. BLEOMYCIN INJ 15U [Suspect]
     Active Substance: BLEOMYCIN SULFATE
     Indication: SKIN PAPILLOMA
     Dates: start: 201809

REACTIONS (2)
  - Wrong technique in product usage process [None]
  - Incorrect route of drug administration [None]

NARRATIVE: CASE EVENT DATE: 20180926
